FAERS Safety Report 16057936 (Version 1)
Quarter: 2019Q1

REPORT INFORMATION
  Report Type: Spontaneous
  Country: US (occurrence: US)
  Receive Date: 20190311
  Receipt Date: 20190311
  Transmission Date: 20190418
  Serious: Yes (Other)
  Sender: FDA-Public Use
  Company Number: US-CASPER PHARMA LLC-2019CAS000086

PATIENT
  Age: 42 Year
  Sex: Female

DRUGS (2)
  1. PENICILLIN G BENZATHINE [Suspect]
     Active Substance: PENICILLIN G BENZATHINE
     Indication: PYREXIA
     Dosage: UNK
     Route: 030
  2. PENICILLIN G BENZATHINE [Suspect]
     Active Substance: PENICILLIN G BENZATHINE
     Indication: COUGH

REACTIONS (2)
  - Embolia cutis medicamentosa [Recovering/Resolving]
  - Product use in unapproved indication [Unknown]
